FAERS Safety Report 4798863-3 (Version None)
Quarter: 2005Q4

REPORT INFORMATION
  Report Type: 
  Country: None (occurrence: None)
  Receive Date: 20051014
  Receipt Date: 20051007
  Transmission Date: 20060501
  Serious: Yes (Hospitalization)
  Sender: FDA-Public Use
  Company Number: BE-GLAXOSMITHKLINE-B0396699A

PATIENT
  Age: 41 Year
  Sex: Female

DRUGS (1)
  1. ZYBAN [Suspect]
     Indication: SMOKING CESSATION THERAPY
     Route: 048
     Dates: start: 20041201, end: 20050903

REACTIONS (8)
  - ANAEMIA [None]
  - BONE MARROW FAILURE [None]
  - CHILLS [None]
  - GINGIVITIS [None]
  - LYMPHADENOPATHY [None]
  - NEUTROPENIA [None]
  - PLATELET COUNT DECREASED [None]
  - PYREXIA [None]
